FAERS Safety Report 4829151-4 (Version None)
Quarter: 2005Q4

REPORT INFORMATION
  Report Type: 
  Country: None (occurrence: None)
  Receive Date: 20051116
  Receipt Date: 20050713
  Transmission Date: 20060501
  Serious: Yes (Hospitalization, Other)
  Sender: FDA-Public Use
  Company Number: US-BRISTOL-MYERS SQUIBB COMPANY-13036991

PATIENT
  Age: 53 Year
  Sex: Female
  Weight: 65 kg

DRUGS (9)
  1. PARAPLATIN [Suspect]
     Indication: OVARIAN CANCER
     Route: 042
     Dates: start: 20050411
  2. TAXOL [Suspect]
     Indication: OVARIAN CANCER
     Route: 042
     Dates: start: 20050411
  3. TAXOTERE [Suspect]
     Indication: OVARIAN CANCER
  4. REGLAN [Suspect]
     Indication: PREMEDICATION
  5. EMEND [Concomitant]
  6. DECADRON [Concomitant]
  7. ATIVAN [Concomitant]
  8. ALOXI [Concomitant]
  9. ZOFRAN [Concomitant]

REACTIONS (4)
  - EYELID PTOSIS [None]
  - FACIAL PAIN [None]
  - HYPOAESTHESIA [None]
  - VISUAL DISTURBANCE [None]
